FAERS Safety Report 23577359 (Version 3)
Quarter: 2024Q3

REPORT INFORMATION
  Report Type: Spontaneous
  Country: US (occurrence: US)
  Receive Date: 20240228
  Receipt Date: 20240723
  Transmission Date: 20241016
  Serious: No
  Sender: CALLIDITAS THERAPEUTICS
  Company Number: US-Calliditas-2024CAL00249

PATIENT
  Age: 78 Year
  Sex: Male

DRUGS (1)
  1. TARPEYO [Suspect]
     Active Substance: BUDESONIDE
     Indication: Haematuria
     Dosage: 16MG (4MG CAPSULES) ONCE DAILY
     Route: 048
     Dates: start: 20221202

REACTIONS (5)
  - Prostatic disorder [Unknown]
  - Fatigue [Unknown]
  - Underdose [Unknown]
  - Localised infection [Unknown]
  - Product dose omission issue [Unknown]
